FAERS Safety Report 8022078-9 (Version None)
Quarter: 2012Q1

REPORT INFORMATION
  Report Type: 
  Country: None (occurrence: None)
  Receive Date: 20120104
  Receipt Date: 20111229
  Transmission Date: 20120608
  Serious: Yes (Other)
  Sender: FDA-Public Use
  Company Number: US-ALEXION PHARMACEUTICALS INC.-A201100475

PATIENT
  Sex: Female

DRUGS (14)
  1. LASIX [Concomitant]
     Dosage: UNK
  2. PROVENTIL [Concomitant]
     Dosage: UNK
  3. ZANTAC [Concomitant]
     Dosage: UNK
  4. MULTI-VITAMIN [Concomitant]
     Dosage: UNK
  5. ZYRTEC [Concomitant]
     Dosage: UNK
  6. COUMADIN [Concomitant]
     Indication: THROMBOSIS PROPHYLAXIS
     Dosage: 7.5 MG, QD
     Dates: end: 20111215
  7. SOLIRIS [Suspect]
     Indication: PAROXYSMAL NOCTURNAL HAEMOGLOBINURIA
     Dosage: 900 MG Q2W
     Route: 042
     Dates: start: 20070706
  8. ALDACTONE [Concomitant]
     Dosage: UNK
  9. SIMVASTATIN [Concomitant]
     Dosage: UNK
  10. FLONASE [Concomitant]
     Dosage: UNK, 50 MCG
  11. PROPRANOLOL [Concomitant]
     Dosage: UNK
  12. POTASSIUM [Concomitant]
     Dosage: UNK
  13. SINGULAIR [Concomitant]
     Dosage: UNK
  14. ADVAIR DISKUS 100/50 [Concomitant]
     Dosage: UNK

REACTIONS (4)
  - POST PROCEDURAL DRAINAGE [None]
  - BREAST CANCER IN SITU [None]
  - BREAST HYPERPLASIA [None]
  - PROCEDURAL COMPLICATION [None]
